FAERS Safety Report 11781811 (Version 2)
Quarter: 2015Q4

REPORT INFORMATION
  Report Type: Report from Study
  Country: JP (occurrence: JP)
  Receive Date: 20151126
  Receipt Date: 20151210
  Transmission Date: 20160305
  Serious: Yes (Hospitalization)
  Sender: FDA-Public Use
  Company Number: JP-AMGEN-JPNCT2015125654

PATIENT
  Age: 80 Year
  Sex: Female
  Weight: 45 kg

DRUGS (22)
  1. MERCAZOLE [Concomitant]
     Active Substance: CARBIMAZOLE
     Indication: HYPERTHYROIDISM
     Dosage: 1 DF, QOD
     Route: 048
  2. ETIZOLAM [Concomitant]
     Active Substance: ETIZOLAM
     Indication: ANXIETY DISORDER
     Dosage: 2 DF, QD
     Route: 048
  3. APIDRA [Concomitant]
     Active Substance: INSULIN GLULISINE
     Indication: DIABETES MELLITUS
     Dosage: UNK
     Route: 058
     Dates: end: 20151106
  4. DARBEPOETIN ALFA [Suspect]
     Active Substance: DARBEPOETIN ALFA
     Indication: NEPHROGENIC ANAEMIA
     Dosage: 30 MUG, Q4WK
     Route: 058
     Dates: start: 20151016
  5. FERRUM                             /00023505/ [Concomitant]
     Indication: IRON DEFICIENCY ANAEMIA
     Dosage: 100 MG, QD
     Route: 048
  6. FRANDOL [Suspect]
     Active Substance: ISOSORBIDE DINITRATE
     Indication: ANGINA PECTORIS
     Dosage: 40 MG, QD
     Route: 062
  7. PROCYLIN [Suspect]
     Active Substance: BERAPROST SODIUM
     Indication: HYPERTENSION
     Dosage: 20 MUG, TID
     Route: 048
  8. FUROSEMIDE. [Suspect]
     Active Substance: FUROSEMIDE
     Indication: HYPERTENSION
     Dosage: 20 MG, QD
     Route: 048
  9. ADALAT [Suspect]
     Active Substance: NIFEDIPINE
     Indication: HYPERTENSION
     Dosage: 40 MG, QD
     Route: 048
     Dates: end: 20151106
  10. ITOROL [Suspect]
     Active Substance: ISOSORBIDE MONONITRATE
     Indication: MYOCARDIAL INFARCTION
     Dosage: 20 MG, BID
     Route: 048
  11. FEBURIC [Concomitant]
     Active Substance: FEBUXOSTAT
     Indication: HYPERURICAEMIA
     Dosage: 20 MG, QD
     Route: 048
  12. CARDENALIN [Concomitant]
     Active Substance: DOXAZOSIN MESYLATE
     Dosage: 0.5 MG, UNK
  13. TRAZENTA [Concomitant]
     Active Substance: LINAGLIPTIN
     Indication: DIABETES MELLITUS
     Dosage: 5 MG, QD
     Route: 048
     Dates: end: 20151108
  14. EPADEL-S [Concomitant]
     Active Substance: ICOSAPENT ETHYL
     Indication: HYPERCHOLESTEROLAEMIA
     Dosage: 1 DF, BID
     Route: 048
  15. MEXITIL [Concomitant]
     Active Substance: MEXILETINE HYDROCHLORIDE
     Indication: DIABETIC NEUROPATHY
     Dosage: 1 DF, TID
     Route: 048
  16. METHYCOBAL [Concomitant]
     Active Substance: METHYLCOBALAMIN
     Indication: NERVOUS SYSTEM DISORDER
     Dosage: 500 MUG, TID
     Route: 048
  17. BAYASPIRIN [Concomitant]
     Active Substance: ASPIRIN
     Indication: MYOCARDIAL INFARCTION
     Dosage: 100 MG, QD
     Route: 048
     Dates: end: 20151108
  18. SUREPOST [Concomitant]
     Active Substance: REPAGLINIDE
     Indication: DIABETES MELLITUS
     Dosage: 0.25 MG, BID
     Route: 048
     Dates: end: 20151106
  19. RABEPRAZOLE NA [Concomitant]
     Active Substance: RABEPRAZOLE SODIUM
     Indication: GASTROOESOPHAGEAL REFLUX DISEASE
     Dosage: 10 MG, QD
     Route: 048
  20. ATORVASTATIN [Concomitant]
     Active Substance: ATORVASTATIN
     Indication: HYPERCHOLESTEROLAEMIA
     Dosage: 10 MG, QD
     Route: 048
  21. BISOPROLOL FUMARATE. [Suspect]
     Active Substance: BISOPROLOL FUMARATE
     Indication: HYPERTENSION
     Dosage: 5 MG, QD
     Route: 048
     Dates: end: 20151106
  22. TRESIBA [Concomitant]
     Active Substance: INSULIN DEGLUDEC
     Indication: DIABETES MELLITUS
     Dosage: UNK
     Route: 058
     Dates: end: 20151106

REACTIONS (3)
  - Renal impairment [Recovered/Resolved]
  - Hyperkalaemia [Recovered/Resolved]
  - Altered state of consciousness [Recovered/Resolved]

NARRATIVE: CASE EVENT DATE: 20151106
